FAERS Safety Report 7633210-0 (Version None)
Quarter: 2011Q3

REPORT INFORMATION
  Report Type: 
  Country: None (occurrence: None)
  Receive Date: 20110725
  Receipt Date: 20110705
  Transmission Date: 20111222
  Serious: Yes (Hospitalization)
  Sender: FDA-Public Use
  Company Number: DE-ROCHE-784479

PATIENT
  Sex: Female
  Weight: 21.6 kg

DRUGS (4)
  1. TOCILIZUMAB [Suspect]
     Route: 065
  2. METHOTREXATE [Concomitant]
     Dates: end: 20110220
  3. ARAVA [Suspect]
     Route: 065
     Dates: start: 20110301, end: 20110329
  4. PREDNISONE [Concomitant]

REACTIONS (1)
  - HISTIOCYTOSIS HAEMATOPHAGIC [None]
